FAERS Safety Report 20429605 (Version 1)
Quarter: 2022Q1

REPORT INFORMATION
  Report Type: Report from Study
  Country: FR (occurrence: FR)
  Receive Date: 20220204
  Receipt Date: 20220204
  Transmission Date: 20220423
  Serious: Yes (Hospitalization)
  Sender: FDA-Public Use
  Company Number: FR-SERVIER-S19006905

PATIENT

DRUGS (11)
  1. ONCASPAR [Suspect]
     Active Substance: PEGASPARGASE
     Indication: Acute lymphocytic leukaemia
     Dosage: 1162.5 IU, QD, ON DAY 4 AND DAY 43
     Route: 042
     Dates: start: 20190329
  2. CYCLOPHOSPHAMIDE [Suspect]
     Active Substance: CYCLOPHOSPHAMIDE
     Indication: Acute lymphocytic leukaemia
     Dosage: 480 MG, QD, D20
     Route: 042
     Dates: start: 20190429
  3. IFOSFAMIDE [Suspect]
     Active Substance: IFOSFAMIDE
     Indication: Acute lymphocytic leukaemia
     Dosage: 480 MG, ON D29
     Route: 042
     Dates: start: 20190329
  4. VINCRISTINE [Suspect]
     Active Substance: VINCRISTINE
     Indication: Acute lymphocytic leukaemia
     Dosage: 0.7 MG, QD, ON DAY D1, D8, D15, D43, D50
     Route: 042
     Dates: start: 20190326
  5. DOXORUBICIN [Suspect]
     Active Substance: DOXORUBICIN
     Indication: Acute lymphocytic leukaemia
     Dosage: 11.6 MG DAILY, ON D1, D8, D15
     Route: 042
     Dates: start: 20190326, end: 20190409
  6. METHOTREXATE [Suspect]
     Active Substance: METHOTREXATE
     Indication: Acute lymphocytic leukaemia
     Dosage: 8 MG, QD, ON D4, D31
     Route: 037
     Dates: start: 20190329
  7. CYTARABINE [Suspect]
     Active Substance: CYTARABINE
     Indication: Acute lymphocytic leukaemia
     Dosage: 20 MG, QD, D4 AND D31
     Route: 037
     Dates: start: 20190329
  8. HYDROCORTISONE [Suspect]
     Active Substance: HYDROCORTISONE
     Indication: Acute lymphocytic leukaemia
     Dosage: 10 MG, QD, ON D4, D31
     Route: 037
     Dates: start: 20190329
  9. DEXAMETHASONE [Suspect]
     Active Substance: DEXAMETHASONE
     Indication: Acute lymphocytic leukaemia
     Dosage: 4.5 MG, QD, ON D1 TO D7, D15 TO D21
     Route: 048
     Dates: start: 20190329
  10. BACTRIM [Concomitant]
     Active Substance: SULFAMETHOXAZOLE\TRIMETHOPRIM
     Indication: Infection prophylaxis
     Dosage: 250 MG (48 H)
     Route: 048
     Dates: start: 20190326
  11. FUNGIZONE [Concomitant]
     Active Substance: AMPHOTERICIN B
     Indication: Antifungal prophylaxis
     Dosage: 150 MG, QD
     Route: 048
     Dates: start: 20190325

REACTIONS (2)
  - Bacterial sepsis [Recovered/Resolved]
  - Staphylococcal sepsis [Recovered/Resolved]

NARRATIVE: CASE EVENT DATE: 20190421
